FAERS Safety Report 7105210-0 (Version None)
Quarter: 2010Q4

REPORT INFORMATION
  Report Type: 
  Country: None (occurrence: None)
  Receive Date: 20101116
  Receipt Date: 20101109
  Transmission Date: 20110411
  Serious: Yes (Death, Other)
  Sender: FDA-Public Use
  Company Number: US-BAXTER-2010BH027840

PATIENT
  Age: 67 Year
  Sex: Male

DRUGS (1)
  1. DIANEAL [Suspect]
     Indication: PERITONEAL DIALYSIS
     Route: 033
     Dates: end: 20101105

REACTIONS (4)
  - CEREBROVASCULAR ACCIDENT [None]
  - DIZZINESS [None]
  - MYOCARDIAL INFARCTION [None]
  - POSTOPERATIVE WOUND INFECTION [None]
